FAERS Safety Report 7641178-6 (Version None)
Quarter: 2011Q3

REPORT INFORMATION
  Report Type: 
  Country: None (occurrence: None)
  Receive Date: 20110728
  Receipt Date: 20110718
  Transmission Date: 20111222
  Serious: Yes (Hospitalization, Other)
  Sender: FDA-Public Use
  Company Number: PHHY2010US81967

PATIENT
  Sex: Male
  Weight: 88.435 kg

DRUGS (12)
  1. GLUCOPHAGE [Concomitant]
     Dosage: 500 MG, DAILY
     Route: 065
  2. TYLENOL-500 [Concomitant]
     Dosage: 2 DF, UNK
     Route: 065
  3. PROCRIT [Concomitant]
     Route: 065
  4. COREG [Concomitant]
     Route: 065
  5. PROCARDIA XL [Concomitant]
     Dosage: 60 MG, DAILY
     Route: 065
  6. PNEUMOVAX 23 [Concomitant]
  7. EXJADE [Suspect]
     Indication: IRON OVERLOAD
     Dosage: 2500 MG, DAILY
     Route: 048
  8. NEUPOGEN [Concomitant]
     Route: 065
  9. ENALAPRIL MALEATE [Concomitant]
     Route: 065
  10. FLUZONE [Concomitant]
     Dosage: UNK UKN, UNK
     Route: 065
  11. IMODIUM [Concomitant]
     Route: 065
  12. METFORMIN HCL [Concomitant]
     Route: 065

REACTIONS (13)
  - DILATATION ATRIAL [None]
  - OEDEMA PERIPHERAL [None]
  - DIARRHOEA [None]
  - NAUSEA [None]
  - DYSPNOEA [None]
  - AORTIC ARTERIOSCLEROSIS [None]
  - TRICUSPID VALVE INCOMPETENCE [None]
  - PULMONARY HYPERTENSION [None]
  - ARTHRALGIA [None]
  - FEELING ABNORMAL [None]
  - DYSGEUSIA [None]
  - MYOCARDIAL INFARCTION [None]
  - MALAISE [None]
